FAERS Safety Report 4633309-7 (Version None)
Quarter: 2005Q2

REPORT INFORMATION
  Report Type: 
  Country: None (occurrence: None)
  Receive Date: 20050408
  Receipt Date: 20050328
  Transmission Date: 20051028
  Serious: Yes (Hospitalization)
  Sender: FDA-Public Use
  Company Number: 05-173

PATIENT
  Age: 45 Year
  Sex: Male

DRUGS (4)
  1. ISOPTIN [Suspect]
     Dosage: ORAL
     Route: 048
     Dates: start: 20041220, end: 20050101
  2. TARKA [Suspect]
     Dosage: ORAL
     Route: 048
     Dates: start: 20050127, end: 20050201
  3. FUROSEMIDE [Concomitant]
  4. ACENOCOUMAROL [Concomitant]

REACTIONS (4)
  - ABDOMINAL PAIN [None]
  - ALANINE AMINOTRANSFERASE INCREASED [None]
  - ASPARTATE AMINOTRANSFERASE INCREASED [None]
  - GAMMA-GLUTAMYLTRANSFERASE INCREASED [None]
